FAERS Safety Report 18346088 (Version 3)
Quarter: 2021Q1

REPORT INFORMATION
  Report Type: Report from Study
  Country: DE (occurrence: DE)
  Receive Date: 20201005
  Receipt Date: 20210118
  Transmission Date: 20210419
  Serious: Yes (Hospitalization)
  Sender: FDA-Public Use
  Company Number: DE-JNJFOC-20200945782

PATIENT
  Age: 80 Year
  Sex: Female
  Weight: 60 kg

DRUGS (15)
  1. ACETYLSALICYLIC ACID [Suspect]
     Active Substance: ASPIRIN
     Indication: CORONARY ARTERY DISEASE
  2. BISOPROLOL [Concomitant]
     Active Substance: BISOPROLOL
     Dosage: 2.5 MG, QD
     Dates: start: 20170608
  3. LYRICA [Concomitant]
     Active Substance: PREGABALIN
     Dosage: 100 MG, QD
     Dates: start: 20170601
  4. ATORVASTATIN [Concomitant]
     Active Substance: ATORVASTATIN
     Dosage: 20 MG, QD
     Dates: start: 20200922
  5. ACETYLSALICYLIC ACID [Suspect]
     Active Substance: ASPIRIN
     Indication: CARDIOVASCULAR EVENT PROPHYLAXIS
     Dosage: 100 MG, QD
     Route: 065
     Dates: start: 20170608, end: 20200922
  6. SIMVASTATIN. [Concomitant]
     Active Substance: SIMVASTATIN
     Dosage: 20 MG, BID
     Dates: start: 20170608, end: 20200922
  7. RIVAROXABAN [Suspect]
     Active Substance: RIVAROXABAN
     Indication: CARDIOVASCULAR EVENT PROPHYLAXIS
     Dosage: 2.5 MG, BID
     Route: 048
     Dates: start: 20190524, end: 20201110
  8. MESALAZIN [Concomitant]
     Active Substance: MESALAMINE
     Dosage: 1 G, BID
     Dates: start: 20200928, end: 20201109
  9. RIVAROXABAN [Suspect]
     Active Substance: RIVAROXABAN
     Indication: CORONARY ARTERY DISEASE
  10. PANTOZOL [Concomitant]
     Active Substance: PANTOPRAZOLE SODIUM
     Dosage: 20 MG, QD
     Dates: start: 20200922, end: 20200925
  11. PANTOZOL [Concomitant]
     Active Substance: PANTOPRAZOLE SODIUM
     Dosage: 40 MG, BID
     Dates: start: 20200925
  12. ACETYLSALICYLIC ACID [Suspect]
     Active Substance: ASPIRIN
     Indication: PERIPHERAL ARTERIAL OCCLUSIVE DISEASE
     Dosage: 100 MG, QD
     Route: 065
     Dates: start: 20200925
  13. RAMIPRIL. [Concomitant]
     Active Substance: RAMIPRIL
     Dosage: 5 MG, QD
     Dates: start: 20170608, end: 20200922
  14. RIVAROXABAN [Suspect]
     Active Substance: RIVAROXABAN
     Indication: PERIPHERAL ARTERIAL OCCLUSIVE DISEASE
  15. ALGELDRATE;MAGNESIUM HYDROXIDE [Concomitant]
     Dosage: 1 DF, QID
     Dates: start: 20200928, end: 20201109

REACTIONS (1)
  - Anaemia [Recovered/Resolved]

NARRATIVE: CASE EVENT DATE: 20200922
